FAERS Safety Report 5515017-3 (Version None)
Quarter: 2007Q4

REPORT INFORMATION
  Report Type: 
  Country: None (occurrence: None)
  Receive Date: 20071113
  Receipt Date: 20061127
  Transmission Date: 20080405
  Serious: No
  Sender: FDA-Public Use
  Company Number: A0627655A

PATIENT
  Age: 53 Year
  Sex: Female

DRUGS (3)
  1. COREG [Suspect]
     Indication: HYPERTENSION
     Dosage: 3.125MG SINGLE DOSE
     Route: 048
     Dates: start: 20061113, end: 20061114
  2. LIMBITROL [Concomitant]
  3. AMBIEN [Concomitant]

REACTIONS (2)
  - OEDEMA PERIPHERAL [None]
  - PAIN IN EXTREMITY [None]
